FAERS Safety Report 17017869 (Version 5)
Quarter: 2021Q4

REPORT INFORMATION
  Report Type: Report from Study
  Country: IT (occurrence: IT)
  Receive Date: 20191111
  Receipt Date: 20211216
  Transmission Date: 20220303
  Serious: Yes (Hospitalization)
  Sender: FDA-Public Use
  Company Number: IT-ROCHE-1933414

PATIENT
  Age: 51 Year
  Sex: Female
  Weight: 55 kg

DRUGS (9)
  1. TRASTUZUMAB [Suspect]
     Active Substance: TRASTUZUMAB
     Indication: Breast cancer
     Dosage: 8 MILLIGRAM/KILOGRAM, 3XW (MOST RECENT DOSE PRIOR TO THE EVENT WAS 13/FEB/2017)
     Route: 042
     Dates: start: 20170119
  2. TRASTUZUMAB [Suspect]
     Active Substance: TRASTUZUMAB
     Indication: Breast cancer metastatic
  3. DOCETAXEL [Suspect]
     Active Substance: DOCETAXEL
     Indication: Breast cancer
     Dosage: DOSE REDUCED
     Route: 042
  4. DOCETAXEL [Suspect]
     Active Substance: DOCETAXEL
     Indication: Breast cancer metastatic
     Dosage: 116 MILLIGRAM, 3XW
     Route: 042
     Dates: start: 20170119
  5. DOCETAXEL [Suspect]
     Active Substance: DOCETAXEL
     Dosage: 105 MILLIGRAM, 3XW
     Route: 042
     Dates: start: 20170119
  6. DOCETAXEL [Suspect]
     Active Substance: DOCETAXEL
     Dosage: 348 MILLIGRAM, Q3W (116 MILLIGRAM, 3XW)
     Route: 042
     Dates: start: 20190119
  7. PERTUZUMAB [Suspect]
     Active Substance: PERTUZUMAB
     Indication: Breast cancer
     Dosage: 840 MILLIGRAM, 3XW (MOST RECENT DOSE PRIOR TO EVENT:13/FEB/2017)
     Route: 042
     Dates: start: 20170119
  8. PERTUZUMAB [Suspect]
     Active Substance: PERTUZUMAB
     Indication: Breast cancer metastatic
  9. CHOLECALCIFEROL [Concomitant]
     Active Substance: CHOLECALCIFEROL
     Dosage: UNK
     Dates: start: 20170919

REACTIONS (4)
  - Presyncope [Recovered/Resolved]
  - Paraesthesia [Not Recovered/Not Resolved]
  - Catheter site pain [Recovered/Resolved]
  - Breast pain [Recovered/Resolved]

NARRATIVE: CASE EVENT DATE: 20170418
